FAERS Safety Report 6019647-4 (Version None)
Quarter: 2008Q4

REPORT INFORMATION
  Report Type: 
  Country: None (occurrence: None)
  Receive Date: 20081222
  Receipt Date: 20071206
  Transmission Date: 20090506
  Serious: Yes (Other)
  Sender: FDA-Public Use
  Company Number: US-JNJFOC-20071202398

PATIENT
  Age: 10 Year
  Sex: Male
  Weight: 43.0917 kg

DRUGS (1)
  1. MOTRIN TAB [Suspect]
     Indication: PAIN IN EXTREMITY
     Dosage: 200 MG, 1 IN 1 TOTAL, ORAL
     Route: 048
     Dates: start: 20071205, end: 20071205

REACTIONS (1)
  - HYPERSENSITIVITY [None]
